FAERS Safety Report 7028599-X (Version None)
Quarter: 2010Q4

REPORT INFORMATION
  Report Type: 
  Country: None (occurrence: None)
  Receive Date: 20101005
  Receipt Date: 20100507
  Transmission Date: 20110411
  Serious: Yes (Life-Threatening, Hospitalization)
  Sender: FDA-Public Use
  Company Number: AU-SANOFI-AVENTIS-2010SA023764

PATIENT
  Age: 70 Year

DRUGS (8)
  1. FLUDARABINE PHOSPHATE [Suspect]
     Route: 048
     Dates: start: 20100411, end: 20100411
  2. RITUXIMAB [Suspect]
     Dosage: TOTAL DOSE SPLIT IN TO 200 MG AND 500 MG
     Route: 042
     Dates: start: 20100410, end: 20100411
  3. RITUXIMAB [Suspect]
     Dosage: TOTAL DOSE SPLIT IN TO 200 MG AND 500 MG
     Route: 042
     Dates: start: 20100410, end: 20100411
  4. RAMIPRIL [Concomitant]
     Dates: start: 19950101
  5. ALLOPURINOL [Concomitant]
     Dates: start: 20100318
  6. ATENOLOL [Concomitant]
     Dates: start: 19950101
  7. ACYCLOVIR [Concomitant]
     Dates: start: 20100408
  8. BACTRIM DS [Concomitant]
     Dates: start: 20100408

REACTIONS (4)
  - ACUTE MYOCARDIAL INFARCTION [None]
  - ACUTE PULMONARY OEDEMA [None]
  - CHEST PAIN [None]
  - HAEMOPTYSIS [None]
